FAERS Safety Report 21525256 (Version 1)
Quarter: 2022Q4

REPORT INFORMATION
  Report Type: Spontaneous
  Country: US (occurrence: US)
  Receive Date: 20221030
  Receipt Date: 20221030
  Transmission Date: 20230113
  Serious: Yes (Other)
  Sender: FDA-Public Use
  Company Number: US-SA-SAC20221027000276

PATIENT
  Age: 40 Year
  Sex: Male

DRUGS (2)
  1. ZANTAC [Suspect]
     Active Substance: RANITIDINE HYDROCHLORIDE
     Indication: Dyspepsia
     Dosage: 150 MG, QD
     Dates: start: 199001, end: 201908
  2. ZANTAC [Suspect]
     Active Substance: RANITIDINE HYDROCHLORIDE
     Indication: Gastrooesophageal reflux disease

REACTIONS (1)
  - Colorectal cancer [Unknown]

NARRATIVE: CASE EVENT DATE: 20150309
